FAERS Safety Report 5572107-7 (Version None)
Quarter: 2007Q4

REPORT INFORMATION
  Report Type: 
  Country: None (occurrence: None)
  Receive Date: 20071221
  Receipt Date: 20071212
  Transmission Date: 20080405
  Serious: Yes (Hospitalization, Other)
  Sender: FDA-Public Use
  Company Number: US-PFIZER INC-2007073127

PATIENT
  Sex: Female
  Weight: 62.1 kg

DRUGS (8)
  1. CHANTIX [Suspect]
     Indication: SMOKING CESSATION THERAPY
     Route: 048
     Dates: start: 20070730, end: 20070901
  2. LITHIUM CARBONATE [Concomitant]
  3. LAMICTAL [Concomitant]
     Dosage: TEXT:250MG DAILY
  4. RISPERDAL [Concomitant]
     Indication: AGITATION
     Dosage: TEXT:1MG AT BEDTIME
  5. RISPERDAL [Concomitant]
     Indication: INSOMNIA
  6. KLONOPIN [Concomitant]
     Indication: INSOMNIA
     Dosage: TEXT:1MG AT BEDTIME AS NEEDED
  7. ESKALITH [Concomitant]
     Dosage: TEXT:450MG DAILY
  8. AMBIEN [Concomitant]
     Dosage: TEXT:10MG AT BEDTIME WHEN NEEDED

REACTIONS (17)
  - ANXIETY [None]
  - CONTUSION [None]
  - DEPRESSION [None]
  - DIARRHOEA [None]
  - DRUG DOSE OMISSION [None]
  - EMOTIONAL DISTRESS [None]
  - FATIGUE [None]
  - INSOMNIA [None]
  - MANIA [None]
  - PANIC ATTACK [None]
  - PARANOIA [None]
  - PHARYNGOLARYNGEAL PAIN [None]
  - PSYCHOTIC DISORDER [None]
  - SLEEP DISORDER [None]
  - SMOKER [None]
  - STRESS [None]
  - VIRAL INFECTION [None]
